FAERS Safety Report 8209358-9 (Version None)
Quarter: 2012Q1

REPORT INFORMATION
  Report Type: 
  Country: None (occurrence: None)
  Receive Date: 20120314
  Receipt Date: 20120307
  Transmission Date: 20120608
  Serious: Yes (Hospitalization, Other)
  Sender: FDA-Public Use
  Company Number: US-BAYER-2012-023590

PATIENT
  Age: 38 Year
  Sex: Female
  Weight: 109.75 kg

DRUGS (10)
  1. YASMIN [Suspect]
  2. MIDRIN [Concomitant]
     Dosage: 325-65-100 MG CAPSULE
     Route: 048
  3. BENTYL [Concomitant]
     Dosage: 20 MG, UNK
     Route: 048
  4. SINGULAIR [Concomitant]
     Dosage: 10 MG TABLET
     Route: 048
  5. LIBRAX [Concomitant]
     Dosage: 2.5 +#8211; 5MG/THREE TIMES/DAY
     Route: 048
  6. PRILOSEC [Concomitant]
     Dosage: 20 MG, TABLET
     Route: 048
  7. CALCIUM +VIT D [Concomitant]
     Dosage: 250-125 MG TABLET
     Route: 048
  8. YAZ [Suspect]
     Indication: PRODUCT USED FOR UNKNOWN INDICATION
  9. ALBUTEROL SULFATE [Concomitant]
     Dosage: 0.83% SOLUTION
     Route: 045
  10. VITAMIN D [Concomitant]
     Dosage: 50,000 UNIT CAPSULE
     Route: 048

REACTIONS (3)
  - CHOLECYSTITIS CHRONIC [None]
  - CHOLELITHIASIS [None]
  - PULMONARY EMBOLISM [None]
